FAERS Safety Report 21133682 (Version 3)
Quarter: 2022Q3

REPORT INFORMATION
  Report Type: Spontaneous
  Country: CH (occurrence: CH)
  Receive Date: 20220726
  Receipt Date: 20220805
  Transmission Date: 20221026
  Serious: Yes (Life-Threatening, Other)
  Sender: FDA-Public Use
  Company Number: CH-BRACCO-2022CH02714

PATIENT
  Age: 59 Year
  Sex: Female

DRUGS (1)
  1. PROHANCE [Suspect]
     Active Substance: GADOTERIDOL
     Indication: Magnetic resonance imaging
     Dosage: 15 ML, SINGLE
     Route: 042
     Dates: start: 20220713, end: 20220713

REACTIONS (6)
  - Loss of consciousness [Unknown]
  - Pulse absent [Unknown]
  - Anaphylactic shock [Unknown]
  - Cardiac arrest [Unknown]
  - Epilepsy [Unknown]
  - Brain injury [Unknown]

NARRATIVE: CASE EVENT DATE: 20220713
